FAERS Safety Report 17190705 (Version 1)
Quarter: 2019Q4

REPORT INFORMATION
  Report Type: Spontaneous
  Country: US (occurrence: US)
  Receive Date: 20191130
  Receipt Date: 20191130
  Transmission Date: 20200122
  Serious: No
  Sender: FDA-Public Use
  Company Number: None

PATIENT
  Age: 51 Year
  Sex: Male

DRUGS (1)
  1. GLATIRAMER 40MG FS INJ  (12/BOX) [Suspect]
     Active Substance: GLATIRAMER ACETATE
     Route: 058
     Dates: start: 20191130

REACTIONS (5)
  - Cardiac disorder [None]
  - Asthenia [None]
  - Back pain [None]
  - Paraesthesia [None]
  - Erythema [None]

NARRATIVE: CASE EVENT DATE: 20191130
